FAERS Safety Report 9010487 (Version 3)
Quarter: 2013Q4

REPORT INFORMATION
  Report Type: Report from Study
  Country: DE (occurrence: DE)
  Receive Date: 20130109
  Receipt Date: 20131018
  Transmission Date: 20140711
  Serious: Yes (Hospitalization)
  Sender: FDA-Public Use
  Company Number: DE-ROCHE-1174993

PATIENT
  Age: 38 Year
  Sex: Female
  Weight: 59 kg

DRUGS (5)
  1. TRASTUZUMAB [Suspect]
     Indication: BREAST CANCER
     Dosage: LAST DOSE PRIOR TO SAE WAS TAKEN ON 05/DEC/2012
     Route: 042
     Dates: start: 20121024
  2. CARBOPLATIN [Suspect]
     Indication: BREAST CANCER
     Dosage: DOSE:AUC2,LAST DOSE PRIOR TO SAE WAS TAKEN ON 19/DEC/2012
     Route: 042
     Dates: start: 20121024
  3. PACLITAXEL [Suspect]
     Indication: BREAST CANCER
     Dosage: LAST DOSE PRIOR TO SAE WAS TAKEN ON 19/DEC/2012
     Route: 042
     Dates: start: 20121024
  4. DOXORUBICIN [Suspect]
     Indication: BREAST CANCER
     Dosage: NON PEGYLATED, LAST DOSE PRIOR TO SAE WAS TAKEN ON 19/DEC/2012
     Route: 042
     Dates: start: 20121024
  5. LAPATINIB [Suspect]
     Indication: BREAST CANCER
     Route: 048
     Dates: start: 20121024, end: 20121221

REACTIONS (1)
  - Pyelonephritis [Recovered/Resolved]
